FAERS Safety Report 5703940-6 (Version None)
Quarter: 2008Q2

REPORT INFORMATION
  Report Type: 
  Country: None (occurrence: None)
  Receive Date: 20080409
  Receipt Date: 20080402
  Transmission Date: 20081010
  Serious: Yes (Hospitalization, Other)
  Sender: FDA-Public Use
  Company Number: 028-C5013-07120984

PATIENT
  Age: 60 Year
  Sex: Male
  Weight: 82 kg

DRUGS (9)
  1. CC-5013 (LENALIDOMIDE) [Suspect]
     Indication: MULTIPLE MYELOMA
     Dosage: 15 MG, DAILY X 21 DAYS OF 28 DAYS CYCLE, ORAL
     Route: 048
     Dates: start: 20071023, end: 20071104
  2. DEXAMETHASONE TAB [Suspect]
     Indication: MULTIPLE MYELOMA
  3. COUMADIN [Concomitant]
  4. SODIUM BICARBONATE IN PLASTIC CONTAINER [Concomitant]
  5. ZOPICLONE   (ZOPICLONE) [Concomitant]
  6. METOPROLOL TARTRATE [Concomitant]
  7. MIRTAZAPINE [Concomitant]
  8. OLANZAPINE [Concomitant]
  9. HYDROCORTISONE [Concomitant]

REACTIONS (9)
  - ATRIAL FIBRILLATION [None]
  - CONFUSIONAL STATE [None]
  - DEHYDRATION [None]
  - LISTERIA SEPSIS [None]
  - LOBAR PNEUMONIA [None]
  - NEUTROPENIA [None]
  - RENAL FAILURE ACUTE [None]
  - RHABDOMYOLYSIS [None]
  - THROMBOCYTOPENIA [None]
